FAERS Safety Report 7565053-0 (Version None)
Quarter: 2011Q2

REPORT INFORMATION
  Report Type: 
  Country: None (occurrence: None)
  Receive Date: 20110622
  Receipt Date: 20110418
  Transmission Date: 20111010
  Serious: Yes (Death)
  Sender: FDA-Public Use
  Company Number: US-MYLANLABS-2011S1008206

PATIENT
  Age: 58 Year
  Sex: Male

DRUGS (7)
  1. METFORMIN HCL [Concomitant]
  2. CLOZAPINE [Suspect]
     Route: 048
  3. LISINOPRIL [Concomitant]
  4. SIMVASTATIN [Concomitant]
  5. NORVASC [Concomitant]
  6. LITHIUM [Concomitant]
  7. TOPROL-XL [Concomitant]

REACTIONS (1)
  - DEATH [None]
